FAERS Safety Report 20694021 (Version 7)
Quarter: 2022Q4

REPORT INFORMATION
  Report Type: Report from Study
  Country: JP (occurrence: JP)
  Receive Date: 20220411
  Receipt Date: 20221025
  Transmission Date: 20230112
  Serious: Yes (Hospitalization)
  Sender: FDA-Public Use
  Company Number: JP-ORPHANEU-2022000251

PATIENT

DRUGS (10)
  1. PASIREOTIDE [Suspect]
     Active Substance: PASIREOTIDE
     Indication: Pituitary-dependent Cushing^s syndrome
     Dosage: 10 MILLIGRAM EVERY 4WEEKS
     Route: 030
     Dates: start: 20191002, end: 20191029
  2. TENELIGLIPTIN [Concomitant]
     Active Substance: TENELIGLIPTIN
     Indication: Pituitary-dependent Cushing^s syndrome
     Dosage: 20 MILLIGRAM
     Route: 048
     Dates: end: 20191015
  3. TENELIGLIPTIN [Concomitant]
     Active Substance: TENELIGLIPTIN
     Indication: Disease complication
  4. REPAGLINIDE [Concomitant]
     Active Substance: REPAGLINIDE
     Indication: Pituitary-dependent Cushing^s syndrome
     Dosage: 1.5 MILLIGRAM
     Route: 048
     Dates: end: 20191020
  5. MIGLITOL [Concomitant]
     Active Substance: MIGLITOL
     Indication: Pituitary-dependent Cushing^s syndrome
     Dosage: 150 MILLIGRAM
     Route: 048
     Dates: end: 20191020
  6. MIGLITOL [Concomitant]
     Active Substance: MIGLITOL
     Indication: Disease complication
  7. HUMALOG [Concomitant]
     Active Substance: INSULIN LISPRO
     Indication: Disease complication
     Dosage: 18 INTERNATIONAL UNIT
     Dates: start: 20191020
  8. HUMALOG [Concomitant]
     Active Substance: INSULIN LISPRO
     Indication: Ketosis
  9. GLARGINE BIOCON [Concomitant]
     Indication: Disease complication
     Dosage: 4 INTERNATIONAL UNIT/INJECTION
     Dates: start: 20191020
  10. GLARGINE BIOCON [Concomitant]
     Indication: Ketosis

REACTIONS (3)
  - Ketosis [Recovered/Resolved]
  - Hyperglycaemia [Recovering/Resolving]
  - Hyperglycaemia [Recovering/Resolving]

NARRATIVE: CASE EVENT DATE: 20191015
